FAERS Safety Report 8941777 (Version 1)
Quarter: 2012Q4

REPORT INFORMATION
  Report Type: 
  Country: US (occurrence: US)
  Receive Date: 20121203
  Receipt Date: 20121203
  Transmission Date: 20130627
  Serious: No
  Sender: FDA-Public Use
  Company Number: GB-ASTRAZENECA-2012SE87905

PATIENT
  Age: 48 Year
  Sex: Male
  Weight: 108.9 kg

DRUGS (3)
  1. SEROQUEL [Suspect]
     Indication: BIPOLAR I DISORDER
     Route: 048
     Dates: start: 2009
  2. LITHIUM [Concomitant]
  3. PROZAC [Concomitant]

REACTIONS (4)
  - Insomnia [Recovered/Resolved]
  - Irritability [Recovered/Resolved]
  - Drug dose omission [Unknown]
  - Intentional drug misuse [Recovered/Resolved]
